FAERS Safety Report 10862280 (Version 2)
Quarter: 2015Q1

REPORT INFORMATION
  Report Type: Spontaneous
  Country: JP (occurrence: JP)
  Receive Date: 20150224
  Receipt Date: 20150311
  Transmission Date: 20150721
  Serious: Yes (Death, Hospitalization, Other)
  Sender: FDA-Public Use
  Company Number: PHJP2015JP002120

PATIENT
  Age: 77 Year
  Sex: Female

DRUGS (2)
  1. ZOMETA [Suspect]
     Active Substance: ZOLEDRONIC ACID
     Dosage: 4 MG, PER ADMINISTRATION
     Route: 041
     Dates: start: 201204, end: 20130405
  2. ZOMETA [Suspect]
     Active Substance: ZOLEDRONIC ACID
     Indication: METASTASES TO BONE
     Dosage: 4 MG
     Route: 041
     Dates: start: 20080208, end: 201203

REACTIONS (17)
  - Osteomyelitis [Unknown]
  - Mouth swelling [Fatal]
  - Fistula [Unknown]
  - Fracture [Unknown]
  - Osteonecrosis of jaw [Fatal]
  - Gingivitis [Fatal]
  - Pain [Fatal]
  - Brain abscess [Fatal]
  - Soft tissue infection [Unknown]
  - Primary sequestrum [Fatal]
  - Oral mucosal erythema [Fatal]
  - Bone lesion [Fatal]
  - Feeding disorder [Fatal]
  - Haematemesis [Recovered/Resolved]
  - Brain oedema [Fatal]
  - Sinusitis [Unknown]
  - Tenderness [Fatal]

NARRATIVE: CASE EVENT DATE: 20120210
